FAERS Safety Report 5795819-9 (Version None)
Quarter: 2008Q3

REPORT INFORMATION
  Report Type: 
  Country: None (occurrence: None)
  Receive Date: 20080701
  Receipt Date: 20080624
  Transmission Date: 20090109
  Serious: Yes (Hospitalization)
  Sender: FDA-Public Use
  Company Number: IT-BAYER-200819127GPV

PATIENT
  Age: 88 Year
  Sex: Male

DRUGS (2)
  1. AVELOX [Suspect]
     Indication: BRONCHOPNEUMONIA
     Dosage: TOTAL DAILY DOSE: 400 MG  UNIT DOSE: 400 MG
     Route: 048
     Dates: start: 20080514, end: 20080518
  2. WARFARIN SODIUM [Interacting]
     Indication: ATRIAL FIBRILLATION
     Route: 065
     Dates: start: 20050519, end: 20080519

REACTIONS (3)
  - COUGH [None]
  - HAEMOPTYSIS [None]
  - INTERNATIONAL NORMALISED RATIO INCREASED [None]
